FAERS Safety Report 23457280 (Version 1)
Quarter: 2024Q1

REPORT INFORMATION
  Report Type: Report from Study
  Country: US (occurrence: US)
  Receive Date: 20240130
  Receipt Date: 20240130
  Transmission Date: 20240410
  Serious: Yes (Other)
  Sender: FDA-Public Use
  Company Number: US-UCBSA-2023059236

PATIENT
  Age: 62 Year

DRUGS (1)
  1. CERTOLIZUMAB PEGOL [Suspect]
     Active Substance: CERTOLIZUMAB PEGOL
     Indication: Rheumatoid arthritis
     Dosage: 400 MILLIGRAM, EV 2 WEEKS(QOW)
     Dates: start: 20231213

REACTIONS (5)
  - Sialoadenitis [Recovering/Resolving]
  - Synovial cyst [Recovering/Resolving]
  - Synovial rupture [Recovering/Resolving]
  - Joint swelling [Recovering/Resolving]
  - Administration site pain [Recovered/Resolved]

NARRATIVE: CASE EVENT DATE: 20231201
